FAERS Safety Report 9641269 (Version 2)
Quarter: 2013Q4

REPORT INFORMATION
  Report Type: Spontaneous
  Country: US (occurrence: US)
  Receive Date: 20131023
  Receipt Date: 20131111
  Transmission Date: 20140711
  Serious: Yes (Other)
  Sender: FDA-Public Use
  Company Number: US-PFIZER INC-2013299406

PATIENT
  Age: 59 Year
  Sex: Female

DRUGS (1)
  1. GABAPENTIN [Suspect]
     Indication: FIBROMYALGIA
     Dosage: UNK

REACTIONS (4)
  - Muscular weakness [Unknown]
  - Tremor [Unknown]
  - Feeling abnormal [Unknown]
  - Drug ineffective [Unknown]
